FAERS Safety Report 23641007 (Version 4)
Quarter: 2024Q3

REPORT INFORMATION
  Report Type: Report from Study
  Country: US (occurrence: US)
  Receive Date: 20240318
  Receipt Date: 20240712
  Transmission Date: 20241016
  Serious: Yes (Death, Hospitalization, Other)
  Sender: BOEHRINGER INGELHEIM
  Company Number: US-BoehringerIngelheim-2023-BI-253938

PATIENT
  Age: 70 Year
  Sex: Male

DRUGS (1)
  1. OFEV [Suspect]
     Active Substance: NINTEDANIB
     Indication: Idiopathic pulmonary fibrosis
     Route: 048
     Dates: end: 20240304

REACTIONS (24)
  - Death [Fatal]
  - Dyspnoea [Recovered/Resolved]
  - Vascular graft [Recovered/Resolved]
  - Immunodeficiency [Not Recovered/Not Resolved]
  - Back injury [Recovering/Resolving]
  - Lower gastrointestinal haemorrhage [Recovering/Resolving]
  - Idiopathic pulmonary fibrosis [Unknown]
  - Pneumonia [Unknown]
  - Epistaxis [Recovered/Resolved]
  - Respiratory syncytial virus infection [Unknown]
  - Loss of consciousness [Recovered/Resolved]
  - Haematochezia [Not Recovered/Not Resolved]
  - Diarrhoea [Recovered/Resolved]
  - Decreased appetite [Recovering/Resolving]
  - Abdominal pain [Not Recovered/Not Resolved]
  - Weight decreased [Recovering/Resolving]
  - Memory impairment [Not Recovered/Not Resolved]
  - Body temperature increased [Recovered/Resolved]
  - Blood pressure abnormal [Recovered/Resolved]
  - Diarrhoea [Not Recovered/Not Resolved]
  - Asthenia [Unknown]
  - Haemoglobin decreased [Unknown]
  - Abdominal pain upper [Unknown]
  - Asthenia [Unknown]

NARRATIVE: CASE EVENT DATE: 20230726
